FAERS Safety Report 8418730-3 (Version None)
Quarter: 2012Q2

REPORT INFORMATION
  Report Type: 
  Country: None (occurrence: None)
  Receive Date: 20120607
  Receipt Date: 20120531
  Transmission Date: 20120825
  Serious: Yes (Other)
  Sender: FDA-Public Use
  Company Number: US-BAYER-2012-055401

PATIENT
  Age: 73 Year
  Sex: Male
  Weight: 71 kg

DRUGS (12)
  1. ASPIRIN [Suspect]
     Indication: ISCHAEMIC HEART DISEASE PROPHYLAXIS
     Dosage: 1 DF, QD
     Route: 048
     Dates: start: 20120101
  2. SYNTHROID [Concomitant]
  3. LIPITOR [Concomitant]
  4. FLOVENT [Concomitant]
  5. ASPIRIN [Suspect]
     Indication: ISCHAEMIC HEART DISEASE PROPHYLAXIS
     Dosage: 1 UNK, UNK
     Route: 048
     Dates: start: 20090715
  6. LASIX [Concomitant]
  7. POTASSIUM CHLORIDE [Concomitant]
  8. WARFARIN SODIUM [Concomitant]
  9. MUCINEX [Concomitant]
  10. UNKNOWN [Concomitant]
  11. ATENOLOL [Concomitant]
  12. COUMADIN [Concomitant]

REACTIONS (1)
  - GASTRIC DISORDER [None]
